FAERS Safety Report 5797328-X (Version None)
Quarter: 2008Q2

REPORT INFORMATION
  Report Type: 
  Country: None (occurrence: None)
  Receive Date: 20080627
  Receipt Date: 20080612
  Transmission Date: 20081010
  Serious: Yes (Other)
  Sender: FDA-Public Use
  Company Number: 2008AL007544

PATIENT
  Age: 57 Year
  Sex: Female

DRUGS (1)
  1. CARISOPRODOL [Suspect]
     Indication: MUSCLE SPASMS
     Dosage: 350 MG;

REACTIONS (7)
  - BACK PAIN [None]
  - BONE DISORDER [None]
  - CONDITION AGGRAVATED [None]
  - DRUG EFFECT DECREASED [None]
  - HEADACHE [None]
  - SPINAL CORD DISORDER [None]
  - SPINAL FRACTURE [None]
